FAERS Safety Report 5192001-3 (Version None)
Quarter: 2006Q4

REPORT INFORMATION
  Report Type: 
  Country: None (occurrence: None)
  Receive Date: 20061220
  Receipt Date: 20061124
  Transmission Date: 20070319
  Serious: Yes (Other)
  Sender: FDA-Public Use
  Company Number: 2006132958

PATIENT
  Age: 59 Year
  Sex: Male
  Weight: 105 kg

DRUGS (5)
  1. SUTENT [Suspect]
     Indication: RENAL CANCER METASTATIC
     Dosage: 50 MG
     Dates: start: 20060918, end: 20061009
  2. DICLOFENAC SODIUM [Concomitant]
  3. BETAMETHASONE [Concomitant]
  4. OMEPRAZOLE [Concomitant]
  5. MORPHINE [Concomitant]

REACTIONS (13)
  - BLOOD LACTATE DEHYDROGENASE INCREASED [None]
  - BLOOD PRESSURE DECREASED [None]
  - BLOOD PRESSURE FLUCTUATION [None]
  - BONE PAIN [None]
  - CAPILLARY DISORDER [None]
  - CONTUSION [None]
  - HAEMATOCRIT DECREASED [None]
  - METASTASES TO SPINE [None]
  - NAUSEA [None]
  - RED BLOOD CELL COUNT DECREASED [None]
  - RENAL CANCER METASTATIC [None]
  - VOMITING [None]
  - WHITE BLOOD CELL COUNT DECREASED [None]
